FAERS Safety Report 18312274 (Version 1)
Quarter: 2020Q3

REPORT INFORMATION
  Report Type: Spontaneous
  Country: ZA (occurrence: ZA)
  Receive Date: 20200925
  Receipt Date: 20200925
  Transmission Date: 20201103
  Serious: Yes (Hospitalization)
  Sender: FDA-Public Use
  Company Number: ZA-MYLANLABS-2020M1082058

PATIENT
  Age: 36 Year
  Sex: Female

DRUGS (1)
  1. ACRIPTEGA [Suspect]
     Active Substance: DOLUTEGRAVIR\LAMIVUDINE\TENOFOVIR DISOPROXIL FUMARATE
     Indication: PRODUCT USED FOR UNKNOWN INDICATION
     Dosage: UNK

REACTIONS (6)
  - Heart rate abnormal [Unknown]
  - Cardiac failure congestive [Unknown]
  - Night sweats [Unknown]
  - Paraesthesia [Unknown]
  - Oedema peripheral [Unknown]
  - Cough [Unknown]
